FAERS Safety Report 4395307-0 (Version None)
Quarter: 2004Q2

REPORT INFORMATION
  Report Type: 
  Country: None (occurrence: None)
  Receive Date: 20040621
  Receipt Date: 20031020
  Transmission Date: 20050107
  Serious: Yes (Other)
  Sender: FDA-Public Use
  Company Number: USA-2003-0010417

PATIENT
  Age: 35 Year
  Sex: Male

DRUGS (2)
  1. OXYCONTIN [Suspect]
     Dosage: 80 MG, BID
     Dates: start: 20021001
  2. XANAX [Concomitant]

REACTIONS (15)
  - ASTHENIA [None]
  - DIARRHOEA [None]
  - DISABILITY [None]
  - DISORIENTATION [None]
  - DRUG ABUSER [None]
  - DRUG DEPENDENCE [None]
  - DRUG WITHDRAWAL SYNDROME [None]
  - HYPERHIDROSIS [None]
  - MALAISE [None]
  - MUSCLE CRAMP [None]
  - PAIN [None]
  - PAIN EXACERBATED [None]
  - SLEEP WALKING [None]
  - TREMOR [None]
  - VOMITING [None]
